FAERS Safety Report 16964295 (Version 1)
Quarter: 2019Q4

REPORT INFORMATION
  Report Type: Spontaneous
  Country: US (occurrence: US)
  Receive Date: 20191027
  Receipt Date: 20191027
  Transmission Date: 20200122
  Serious: Yes (Disabling, Other)
  Sender: FDA-Public Use
  Company Number: None

PATIENT
  Age: 48 Year
  Sex: Female
  Weight: 72 kg

DRUGS (4)
  1. CLONIDIN 1 MG [Suspect]
     Active Substance: CLONIDINE HYDROCHLORIDE
     Indication: PERINATAL DEPRESSION
     Dosage: ?          QUANTITY:1 TABLET(S);?
     Route: 048
     Dates: start: 20040905, end: 20190630
  2. EFFEXOR 150 MG ER [Concomitant]
  3. CLONIDIN 1 MG [Suspect]
     Active Substance: CLONIDINE HYDROCHLORIDE
     Indication: BIPOLAR I DISORDER
     Dosage: ?          QUANTITY:1 TABLET(S);?
     Route: 048
     Dates: start: 20040905, end: 20190630
  4. DEPAKOTE [Concomitant]
     Active Substance: DIVALPROEX SODIUM

REACTIONS (8)
  - Anxiety [None]
  - Pain [None]
  - Temporomandibular joint syndrome [None]
  - Impaired driving ability [None]
  - Tremor [None]
  - Aphasia [None]
  - Withdrawal syndrome [None]
  - Insomnia [None]

NARRATIVE: CASE EVENT DATE: 20190101
